FAERS Safety Report 23854370 (Version 4)
Quarter: 2025Q1

REPORT INFORMATION
  Report Type: Spontaneous
  Country: US (occurrence: US)
  Receive Date: 20240514
  Receipt Date: 20250226
  Transmission Date: 20250409
  Serious: No
  Sender: BIOGEN
  Company Number: US-BIOGEN-2024BI01264414

PATIENT
  Sex: Female

DRUGS (1)
  1. TYSABRI [Suspect]
     Active Substance: NATALIZUMAB
     Indication: Multiple sclerosis
     Route: 050
     Dates: start: 20180129

REACTIONS (7)
  - Cognitive disorder [Unknown]
  - Memory impairment [Unknown]
  - Visual impairment [Unknown]
  - Insomnia [Unknown]
  - Bladder disorder [Unknown]
  - Fatigue [Unknown]
  - Anxiety [Unknown]
